FAERS Safety Report 25984496 (Version 1)
Quarter: 2025Q4

REPORT INFORMATION
  Report Type: Report from Study
  Country: US (occurrence: US)
  Receive Date: 20251031
  Receipt Date: 20251031
  Transmission Date: 20260117
  Serious: Yes (Other)
  Sender: ALEXION PHARMACEUTICALS
  Company Number: US-AstraZeneca-CH-00980993A

PATIENT
  Age: 58 Year
  Sex: Female

DRUGS (1)
  1. KANUMA [Suspect]
     Active Substance: SEBELIPASE ALFA
     Indication: Lysosomal acid lipase deficiency
     Dosage: UNK

REACTIONS (1)
  - Pneumonia [Recovered/Resolved]

NARRATIVE: CASE EVENT DATE: 20251001
